FAERS Safety Report 20814819 (Version 1)
Quarter: 2022Q2

REPORT INFORMATION
  Report Type: Spontaneous
  Country: US (occurrence: US)
  Receive Date: 20220511
  Receipt Date: 20220511
  Transmission Date: 20220721
  Serious: Yes (Hospitalization, Other)
  Sender: FDA-Public Use
  Company Number: US-INCYTE CORPORATION-2022IN004530

PATIENT

DRUGS (4)
  1. JAKAFI [Suspect]
     Active Substance: RUXOLITINIB
     Indication: Myelofibrosis
     Dosage: 10 MILLIGRAM, BID
     Route: 048
     Dates: start: 20220330, end: 20220415
  2. JAKAFI [Suspect]
     Active Substance: RUXOLITINIB
     Dosage: 5 MILLIGRAM, BID
     Route: 048
     Dates: start: 20220420
  3. PELABRESIB MONOHYDRATE [Suspect]
     Active Substance: PELABRESIB MONOHYDRATE
     Indication: Myelofibrosis
     Dosage: UNK
     Route: 065
     Dates: start: 20220330, end: 20220415
  4. PELABRESIB MONOHYDRATE [Suspect]
     Active Substance: PELABRESIB MONOHYDRATE
     Dosage: UNK
     Route: 065
     Dates: start: 20220420

REACTIONS (1)
  - Syncope [Unknown]

NARRATIVE: CASE EVENT DATE: 20220415
